FAERS Safety Report 7777060-3 (Version None)
Quarter: 2011Q3

REPORT INFORMATION
  Report Type: 
  Country: None (occurrence: None)
  Receive Date: 20110926
  Receipt Date: 20110926
  Transmission Date: 20111222
  Serious: Yes (Life-Threatening, Disabling, Other)
  Sender: FDA-Public Use
  Company Number: None

PATIENT
  Age: 70 Year
  Sex: Female
  Weight: 38.555 kg

DRUGS (1)
  1. ARICEPT [Suspect]

REACTIONS (4)
  - PRODUCT QUALITY ISSUE [None]
  - HYPOPHAGIA [None]
  - DECREASED APPETITE [None]
  - WEIGHT DECREASED [None]
